FAERS Safety Report 8087112-9 (Version None)
Quarter: 2012Q1

REPORT INFORMATION
  Report Type: 
  Country: None (occurrence: None)
  Receive Date: 20120130
  Receipt Date: 20120118
  Transmission Date: 20120608
  Serious: Yes (Disabling)
  Sender: FDA-Public Use
  Company Number: JP-BRISTOL-MYERS SQUIBB COMPANY-16334054

PATIENT
  Age: 51 Year
  Sex: Male

DRUGS (2)
  1. MITOMYCIN [Suspect]
     Indication: MALIGNANT FIBROUS HISTIOCYTOMA
     Dosage: INJECTION
     Route: 013
  2. EPIRUBICIN HYDROCHLORIDE [Suspect]
     Indication: MALIGNANT FIBROUS HISTIOCYTOMA
     Route: 013

REACTIONS (2)
  - FEMORAL NERVE PALSY [None]
  - SKIN ULCER [None]
